FAERS Safety Report 8842406 (Version 4)
Quarter: 2013Q1

REPORT INFORMATION
  Report Type: Spontaneous
  Country: JP (occurrence: JP)
  Receive Date: 20121016
  Receipt Date: 20130314
  Transmission Date: 20140127
  Serious: Yes (Other)
  Sender: FDA-Public Use
  Company Number: JP-PFIZER INC-2012251303

PATIENT
  Age: 60 Year
  Sex: Female

DRUGS (6)
  1. FLUOROURACIL [Suspect]
     Indication: BREAST CANCER
     Dosage: 950 MG, 1X/DAY
     Dates: start: 20100701
  2. EPIRUBICIN HYDROCHLORIDE [Suspect]
     Indication: BREAST CANCER
     Dosage: 130 MG, 1X/DAY
     Dates: start: 20100701
  3. CYCLOPHOSPHAMIDE [Suspect]
     Indication: BREAST CANCER
     Dosage: 950 MG, 1X/DAY
     Dates: start: 20100701
  4. PROPERICIAZINE [Concomitant]
     Dosage: 75 MG, UNK
  5. TIMIPERONE [Concomitant]
     Dosage: 6 MG, UNK
     Route: 048
  6. BIPERIDEN HYDROCHLORIDE [Concomitant]
     Dosage: 10 MG, UNK
     Route: 048

REACTIONS (1)
  - Febrile neutropenia [Recovered/Resolved]
